FAERS Safety Report 16243983 (Version 1)
Quarter: 2019Q2

REPORT INFORMATION
  Report Type: Spontaneous
  Country: FR (occurrence: FR)
  Receive Date: 20190426
  Receipt Date: 20190426
  Transmission Date: 20190711
  Serious: Yes (Hospitalization)
  Sender: FDA-Public Use
  Company Number: FR-MYLANLABS-2019M1037924

PATIENT
  Age: 78 Year
  Sex: Female
  Weight: 78 kg

DRUGS (11)
  1. CEFEPIME [Suspect]
     Active Substance: CEFEPIME HYDROCHLORIDE
     Indication: POST PROCEDURAL INFECTION
     Dosage: 2000 MILLIGRAM, Q8H
     Route: 042
     Dates: start: 20180608, end: 20180618
  2. BISOPROLOL [Concomitant]
     Active Substance: BISOPROLOL
     Dosage: 2.5 MILLIGRAM, QD
     Route: 048
  3. TAHOR [Concomitant]
     Active Substance: ATORVASTATIN CALCIUM
     Dosage: 40 MILLIGRAM, QD
     Route: 048
  4. LASILIX                            /00032601/ [Concomitant]
     Active Substance: FUROSEMIDE
     Dosage: 40 MILLIGRAM, QD
     Route: 048
  5. TRAMADOL. [Concomitant]
     Active Substance: TRAMADOL
     Dosage: 300 MILLIGRAM, QD
     Route: 048
  6. PANTOPRAZOLE [Concomitant]
     Active Substance: PANTOPRAZOLE
     Dosage: 20 MILLIGRAM, QD
     Route: 048
  7. KARDEGIC [Concomitant]
     Active Substance: ASPIRIN DL-LYSINE
     Dosage: 75 MILLIGRAM, QD
     Route: 048
  8. VANCOMYCIN [Suspect]
     Active Substance: VANCOMYCIN
     Indication: POST PROCEDURAL INFECTION
     Dosage: 750 MILLIGRAM, BID
     Route: 042
     Dates: start: 20180608, end: 20180618
  9. PARACETAMOL [Concomitant]
     Active Substance: ACETAMINOPHEN
     Dosage: 3000 MILLIGRAM, QD
     Route: 048
  10. RENITEC                            /00574902/ [Concomitant]
     Active Substance: ENALAPRIL MALEATE
     Dosage: 1.25 MILLIGRAM, QD
     Route: 048
  11. OFLOCET                            /00731801/ [Suspect]
     Active Substance: OFLOXACIN
     Indication: POST PROCEDURAL INFECTION
     Dosage: 600 MILLIGRAM, QD
     Route: 042
     Dates: start: 20180608, end: 20180612

REACTIONS (1)
  - Confusional state [Recovered/Resolved]

NARRATIVE: CASE EVENT DATE: 20180612
